FAERS Safety Report 5226403-3 (Version None)
Quarter: 2006Q4

REPORT INFORMATION
  Report Type: 
  Country: None (occurrence: None)
  Receive Date: 20061201
  Receipt Date: 20061023
  Transmission Date: 20070319
  Serious: No
  Sender: FDA-Public Use
  Company Number: US200610004154

PATIENT
  Age: 52 Year
  Sex: Female

DRUGS (3)
  1. CYMBALTA [Suspect]
     Indication: DEPRESSION
     Dosage: 30 MG, EACH MORNING,
     Dates: start: 20060101
  2. ZELNORM/CAN/(TEGASEROD MALEATE) [Concomitant]
  3. ZETIA [Concomitant]

REACTIONS (5)
  - ANOREXIA [None]
  - BLOOD PRESSURE INCREASED [None]
  - COUGH [None]
  - PARAESTHESIA ORAL [None]
  - SOMNOLENCE [None]
